FAERS Safety Report 20724643 (Version 1)
Quarter: 2022Q2

REPORT INFORMATION
  Report Type: Spontaneous
  Country: US (occurrence: None)
  Receive Date: 20220418
  Receipt Date: 20220418
  Transmission Date: 20220721
  Serious: Yes (Disabling)
  Sender: FDA-Public Use
  Company Number: None

PATIENT
  Age: 57 Year
  Sex: Male
  Weight: 86.85 kg

DRUGS (3)
  1. TRAZODONE HYDROCHLORIDE [Suspect]
     Active Substance: TRAZODONE HYDROCHLORIDE
     Indication: Sleep disorder
     Dosage: FREQUENCY : AT BEDTIME;?
     Route: 048
     Dates: start: 20220416, end: 20220417
  2. NORCO [Concomitant]
     Active Substance: ACETAMINOPHEN\HYDROCODONE BITARTRATE
  3. AMBIEN [Concomitant]
     Active Substance: ZOLPIDEM TARTRATE

REACTIONS (14)
  - Restlessness [None]
  - Agitation [None]
  - Insomnia [None]
  - Tremor [None]
  - Heart rate increased [None]
  - Erection increased [None]
  - Tinnitus [None]
  - Dysuria [None]
  - Pain [None]
  - Choking [None]
  - Productive cough [None]
  - Testicular injury [None]
  - Testicular pain [None]
  - Foaming at mouth [None]

NARRATIVE: CASE EVENT DATE: 20220416
